FAERS Safety Report 21642263 (Version 1)
Quarter: 2022Q4

REPORT INFORMATION
  Report Type: Spontaneous
  Country: US (occurrence: US)
  Receive Date: 20221125
  Receipt Date: 20221125
  Transmission Date: 20230112
  Serious: Yes (Other)
  Sender: FDA-Public Use
  Company Number: US-BTGSP-US-BTGSP-22-0012

PATIENT
  Age: 33 Year
  Sex: Male
  Weight: 72 kg

DRUGS (6)
  1. CROFAB [Suspect]
     Active Substance: CROTALIDAE POLYVALENT IMMUNE FAB (OVINE)
     Indication: Snake bite
     Dosage: 4 VIALS, INITIAL CONTROL
     Route: 042
     Dates: start: 20220218, end: 20220218
  2. CROFAB [Suspect]
     Active Substance: CROTALIDAE POLYVALENT IMMUNE FAB (OVINE)
     Dosage: 4 VIALS, INITIAL CONTROL
     Route: 042
     Dates: start: 20220218, end: 20220218
  3. CROFAB [Suspect]
     Active Substance: CROTALIDAE POLYVALENT IMMUNE FAB (OVINE)
     Dosage: 4 VIALS, INITIAL CONTROL
     Route: 042
     Dates: start: 20220218, end: 20220218
  4. CROFAB [Suspect]
     Active Substance: CROTALIDAE POLYVALENT IMMUNE FAB (OVINE)
     Dosage: 2 VIALS, MAINTENANCE
     Route: 042
     Dates: start: 20220219, end: 20220219
  5. CROFAB [Suspect]
     Active Substance: CROTALIDAE POLYVALENT IMMUNE FAB (OVINE)
     Dosage: 2 VIALS, MAINTENANCE
     Route: 042
     Dates: start: 20220219, end: 20220219
  6. CROFAB [Suspect]
     Active Substance: CROTALIDAE POLYVALENT IMMUNE FAB (OVINE)
     Dosage: 2 VIALS, MAINTENANCE
     Route: 042
     Dates: start: 20220219, end: 20220219

REACTIONS (3)
  - Thrombocytopenia [Unknown]
  - Therapy change [Unknown]
  - Product quality issue [Unknown]

NARRATIVE: CASE EVENT DATE: 20220218
